FAERS Safety Report 15466378 (Version 3)
Quarter: 2019Q1

REPORT INFORMATION
  Report Type: Report from Study
  Country: US (occurrence: US)
  Receive Date: 20181004
  Receipt Date: 20190125
  Transmission Date: 20190417
  Serious: Yes (Death, Hospitalization)
  Sender: FDA-Public Use
  Company Number: US-ACTELION-A-NJ2018-176937

PATIENT
  Age: 66 Year
  Sex: Female
  Weight: 50.3 kg

DRUGS (20)
  1. UPTRAVI [Suspect]
     Active Substance: SELEXIPAG
     Dosage: 800 MCG, BID
     Route: 048
     Dates: start: 20180730
  2. FUROSEMIDE. [Concomitant]
     Active Substance: FUROSEMIDE
     Dosage: 60 MG, QD
     Dates: start: 20180512, end: 20180926
  3. RANITIDINE. [Concomitant]
     Active Substance: RANITIDINE
     Dosage: UNK
     Dates: start: 20161015
  4. BIOTIN [Concomitant]
     Active Substance: BIOTIN
  5. UPTRAVI [Suspect]
     Active Substance: SELEXIPAG
     Dosage: 1000 MCG, BID
     Route: 048
  6. MYCOPHENOLATE [Concomitant]
     Active Substance: MYCOPHENOLIC ACID
     Dosage: UNK
     Dates: start: 20170605
  7. ALOE VERA [Concomitant]
     Active Substance: ALOE VERA LEAF
     Route: 048
  8. MULTIVITAMINUM [Concomitant]
  9. UPTRAVI [Suspect]
     Active Substance: SELEXIPAG
     Indication: PULMONARY ARTERIAL HYPERTENSION
     Dosage: 400 MCG, BID
     Route: 048
     Dates: start: 20180705, end: 20180926
  10. OXYGEN. [Concomitant]
     Active Substance: OXYGEN
     Dosage: UNK
     Dates: start: 2016
  11. PYRIDOXINE [Concomitant]
     Active Substance: PYRIDOXINE
  12. FUROSEMIDE. [Concomitant]
     Active Substance: FUROSEMIDE
     Dosage: 80 MG, QD
     Route: 048
  13. SILDENAFIL. [Concomitant]
     Active Substance: SILDENAFIL
     Indication: PULMONARY HYPERTENSION
     Dosage: 20 MG, TID
     Dates: start: 20180501, end: 20180926
  14. FERROUS SULFATE. [Concomitant]
     Active Substance: FERROUS SULFATE
  15. AZITHROMYCIN ANHYDROUS. [Concomitant]
     Active Substance: AZITHROMYCIN ANHYDROUS
     Dosage: 250 MG, QD
     Dates: start: 20171108, end: 20180926
  16. GARLIC. [Concomitant]
     Active Substance: GARLIC
  17. ZINC GLUCONATE [Concomitant]
     Active Substance: ZINC GLUCONATE
  18. FUROSEMIDE. [Concomitant]
     Active Substance: FUROSEMIDE
     Dosage: UNK
     Route: 042
  19. MIRTAZAPINE. [Concomitant]
     Active Substance: MIRTAZAPINE
     Dosage: UNK
     Dates: start: 20171108
  20. CYANOCOBALAMIN. [Concomitant]
     Active Substance: CYANOCOBALAMIN

REACTIONS (12)
  - Respiratory failure [Fatal]
  - Pulmonary arterial hypertension [Fatal]
  - N-terminal prohormone brain natriuretic peptide increased [Unknown]
  - Productive cough [Not Recovered/Not Resolved]
  - Infection [Not Recovered/Not Resolved]
  - Immunosuppression [Unknown]
  - Interstitial lung disease [Fatal]
  - Disease progression [Fatal]
  - Diarrhoea [Unknown]
  - Oedema [Unknown]
  - Dyspnoea [Recovering/Resolving]
  - Oxygen saturation decreased [Recovering/Resolving]

NARRATIVE: CASE EVENT DATE: 20180726
